FAERS Safety Report 4918244-9 (Version None)
Quarter: 2006Q1

REPORT INFORMATION
  Report Type: 
  Country: None (occurrence: None)
  Receive Date: 20060215
  Receipt Date: 20060206
  Transmission Date: 20060701
  Serious: Yes (Hospitalization, Other)
  Sender: FDA-Public Use
  Company Number: 200514685BCC

PATIENT
  Age: 53 Year
  Sex: Male
  Weight: 113.3993 kg

DRUGS (3)
  1. ALEVE [Suspect]
     Indication: OSTEOARTHRITIS
     Dosage: 440 MG, ONCE, ORAL
     Route: 048
     Dates: start: 19951001
  2. FIBERCON (POLYCARBOPHIL CALCIUM) [Suspect]
  3. MEPROBAMATE [Suspect]

REACTIONS (6)
  - CONDITION AGGRAVATED [None]
  - DERMATITIS EXFOLIATIVE [None]
  - DRUG HYPERSENSITIVITY [None]
  - INTERTRIGO CANDIDA [None]
  - MYOCARDIAL INFARCTION [None]
  - PSORIASIS [None]
